FAERS Safety Report 5043953-3 (Version None)
Quarter: 2006Q3

REPORT INFORMATION
  Report Type: 
  Country: None (occurrence: None)
  Receive Date: 20060706
  Receipt Date: 20060626
  Transmission Date: 20061208
  Serious: Yes (Hospitalization)
  Sender: FDA-Public Use
  Company Number: US-ABBOTT-06P-163-0337060-00

PATIENT
  Age: 12 Year
  Sex: Female

DRUGS (3)
  1. KALETRA [Suspect]
     Indication: ANTIVIRAL PROPHYLAXIS
     Dates: start: 20030101
  2. TENOFOVIR [Suspect]
     Indication: ANTIVIRAL PROPHYLAXIS
     Dates: start: 20030101
  3. DIDANOSINE [Suspect]
     Indication: ANTIVIRAL PROPHYLAXIS
     Dates: start: 20030101

REACTIONS (10)
  - ASTHENIA [None]
  - BLOOD GLUCOSE INCREASED [None]
  - BLOOD OSMOLARITY INCREASED [None]
  - FANCONI SYNDROME [None]
  - HYPOPHOSPHATAEMIA [None]
  - NEPHROGENIC DIABETES INSIPIDUS [None]
  - RENAL FAILURE [None]
  - RENAL TUBULAR ACIDOSIS [None]
  - RESPIRATORY RATE INCREASED [None]
  - WEIGHT DECREASED [None]
